FAERS Safety Report 10013066 (Version 2)
Quarter: 2014Q2

REPORT INFORMATION
  Report Type: Spontaneous
  Country: US (occurrence: US)
  Receive Date: 20140314
  Receipt Date: 20140429
  Transmission Date: 20141212
  Serious: No
  Sender: FDA-Public Use
  Company Number: US-PFIZER INC-2014072006

PATIENT
  Age: 47 Year
  Sex: Male
  Weight: 100 kg

DRUGS (1)
  1. DEPO-TESTOSTERONE [Suspect]
     Indication: HYPOGONADISM MALE
     Dosage: UNK
     Dates: start: 20140101

REACTIONS (1)
  - Blood test abnormal [Unknown]
